FAERS Safety Report 5400307-5 (Version None)
Quarter: 2007Q3

REPORT INFORMATION
  Report Type: 
  Country: None (occurrence: None)
  Receive Date: 20070730
  Receipt Date: 20070720
  Transmission Date: 20080115
  Serious: Yes (Other)
  Sender: FDA-Public Use
  Company Number: US-JNJFOC-20070704980

PATIENT
  Sex: Female

DRUGS (7)
  1. INVEGA [Suspect]
     Indication: SCHIZOPHRENIA
     Route: 048
  2. INVEGA [Suspect]
     Indication: BIPOLAR DISORDER
     Route: 048
  3. HALDOL [Suspect]
     Indication: DRUG USE FOR UNKNOWN INDICATION
  4. ZYPREXA [Concomitant]
  5. CYMBALTA [Concomitant]
  6. INSULIN [Concomitant]
     Route: 048
  7. ATIVAN [Concomitant]

REACTIONS (1)
  - NEUROLEPTIC MALIGNANT SYNDROME [None]
